FAERS Safety Report 17566699 (Version 1)
Quarter: 2020Q1

REPORT INFORMATION
  Report Type: Spontaneous
  Country: US (occurrence: US)
  Receive Date: 20200320
  Receipt Date: 20200320
  Transmission Date: 20200409
  Serious: No
  Sender: FDA-Public Use
  Company Number: US-ASTRAZENECA-2020SE29297

PATIENT
  Age: 69 Year
  Sex: Female
  Weight: 53.1 kg

DRUGS (1)
  1. FASENRA [Suspect]
     Active Substance: BENRALIZUMAB
     Indication: ASTHMA
     Route: 058
     Dates: start: 2019

REACTIONS (3)
  - Allergy to metals [Unknown]
  - Food allergy [Unknown]
  - Chills [Unknown]

NARRATIVE: CASE EVENT DATE: 20200221
